FAERS Safety Report 20194973 (Version 1)
Quarter: 2021Q4

REPORT INFORMATION
  Report Type: Spontaneous
  Country: US (occurrence: None)
  Receive Date: 20211216
  Receipt Date: 20211216
  Transmission Date: 20220303
  Serious: Yes (Death)
  Sender: FDA-Public Use
  Company Number: None

PATIENT
  Sex: Female

DRUGS (1)
  1. PULMOZYME [Suspect]
     Active Substance: DORNASE ALFA
     Indication: Pseudomonas infection
     Dosage: OTHER QUANTITY : 1 VIAL;?FREQUENCY : DAILY;?
     Route: 048
     Dates: start: 202107

REACTIONS (1)
  - Death [None]
